FAERS Safety Report 19612516 (Version 2)
Quarter: 2021Q3

REPORT INFORMATION
  Report Type: Spontaneous
  Country: US (occurrence: US)
  Receive Date: 20210727
  Receipt Date: 20210907
  Transmission Date: 20211014
  Serious: No
  Sender: FDA-Public Use
  Company Number: US-ORGANON-O2107USA001418

PATIENT
  Sex: Female

DRUGS (3)
  1. NEXPLANON [Suspect]
     Active Substance: ETONOGESTREL
     Dosage: IMPLANT
     Route: 059
     Dates: start: 20210715
  2. NEXPLANON [Suspect]
     Active Substance: ETONOGESTREL
     Indication: CONTRACEPTION
     Dosage: 68 MILLIGRAM, LEFT UPPER ARM (DOMINANT ARM)
     Route: 059
     Dates: start: 20201202, end: 20210715
  3. COVID?19 VACCINE NOS. [Suspect]
     Active Substance: COVID-19 VACCINE NOS
     Dosage: UNK

REACTIONS (3)
  - Implant site hypoaesthesia [Recovered/Resolved]
  - Device placement issue [Not Recovered/Not Resolved]
  - Implant site paraesthesia [Recovered/Resolved]

NARRATIVE: CASE EVENT DATE: 2021
